FAERS Safety Report 19630438 (Version 1)
Quarter: 2021Q3

REPORT INFORMATION
  Report Type: Other
  Country: GB (occurrence: GB)
  Receive Date: 20210729
  Receipt Date: 20210729
  Transmission Date: 20211014
  Serious: No
  Sender: FDA-Public Use
  Company Number: GB-GW PHARMA-202107GBGW03640

PATIENT

DRUGS (7)
  1. EPIDYOLEX [Suspect]
     Active Substance: CANNABIDIOL
     Dosage: DECREASED DOSE
     Route: 048
     Dates: start: 2021
  2. LACOSAMIDE. [Concomitant]
     Active Substance: LACOSAMIDE
     Indication: ILL-DEFINED DISORDER
     Dosage: UNK
     Route: 065
  3. EPIDYOLEX [Suspect]
     Active Substance: CANNABIDIOL
     Indication: LENNOX-GASTAUT SYNDROME
     Dosage: 5 MG/KG, 100 MILLIGRAM, BID
     Route: 048
     Dates: start: 20210607, end: 2021
  4. EPIDYOLEX [Suspect]
     Active Substance: CANNABIDIOL
     Dosage: 10 MG/KG, 200 MILLIGRAM, BID
     Route: 048
     Dates: start: 2021, end: 2021
  5. CLOBAZAM. [Concomitant]
     Active Substance: CLOBAZAM
     Indication: ILL-DEFINED DISORDER
     Dosage: UNK
     Route: 065
  6. PARACETAMOL [Concomitant]
     Active Substance: ACETAMINOPHEN
     Indication: ILL-DEFINED DISORDER
     Dosage: UNK
     Route: 065
  7. RUFINAMIDE [Concomitant]
     Active Substance: RUFINAMIDE
     Indication: ILL-DEFINED DISORDER
     Dosage: UNK
     Route: 065

REACTIONS (3)
  - Agitation [Recovering/Resolving]
  - Aggression [Unknown]
  - Trichotillomania [Unknown]

NARRATIVE: CASE EVENT DATE: 202106
